FAERS Safety Report 8189524-1 (Version None)
Quarter: 2012Q1

REPORT INFORMATION
  Report Type: 
  Country: None (occurrence: None)
  Receive Date: 20120307
  Receipt Date: 20120224
  Transmission Date: 20120608
  Serious: Yes (Other)
  Sender: FDA-Public Use
  Company Number: JP-JNJFOC-20120204264

PATIENT
  Sex: Male
  Weight: 55 kg

DRUGS (17)
  1. REMICADE [Suspect]
     Route: 042
     Dates: start: 20110101
  2. ALFAROL [Concomitant]
     Indication: OSTEOPOROSIS
     Route: 048
  3. ETODOLAC [Concomitant]
     Indication: OSTEOPOROSIS
     Route: 048
  4. REMICADE [Suspect]
     Indication: RHEUMATOID ARTHRITIS
     Route: 042
     Dates: start: 20111215
  5. REMICADE [Suspect]
     Route: 042
     Dates: start: 20050201
  6. HUMIRA [Concomitant]
     Route: 065
     Dates: start: 20110415, end: 20110520
  7. POLARAMINE [Concomitant]
     Indication: PREMEDICATION
     Route: 048
     Dates: start: 20120126, end: 20120126
  8. REMICADE [Suspect]
     Route: 042
     Dates: start: 20111229
  9. SOLU-CORTEF [Concomitant]
     Indication: PREMEDICATION
     Route: 042
     Dates: start: 20120126, end: 20120126
  10. BONOTEO [Concomitant]
     Indication: OSTEOPOROSIS
     Route: 048
  11. HUMIRA [Concomitant]
     Route: 065
  12. PREDNISOLONE [Concomitant]
     Indication: RHEUMATOID ARTHRITIS
     Route: 048
  13. FOLIC ACID [Concomitant]
     Indication: PROPHYLAXIS
     Route: 048
  14. AMLODIPINE [Concomitant]
     Indication: HYPERTENSION
     Route: 048
  15. AVAPRO [Concomitant]
     Indication: HYPERTENSION
     Route: 048
  16. REMICADE [Suspect]
     Route: 042
     Dates: start: 20120126
  17. METHOTREXATE [Concomitant]
     Indication: RHEUMATOID ARTHRITIS
     Route: 048

REACTIONS (3)
  - INFUSION RELATED REACTION [None]
  - THERAPEUTIC RESPONSE DECREASED [None]
  - ANAPHYLACTIC REACTION [None]
